FAERS Safety Report 6383093-4 (Version None)
Quarter: 2009Q3

REPORT INFORMATION
  Report Type: 
  Country: None (occurrence: None)
  Receive Date: 20090928
  Receipt Date: 20090916
  Transmission Date: 20100115
  Serious: Yes (Hospitalization)
  Sender: FDA-Public Use
  Company Number: GXKR2009US10411

PATIENT
  Age: 34 Year
  Sex: Male

DRUGS (1)
  1. METHADONE (NGX) (METHADONE) TABLET [Suspect]
     Dosage: 100 MG, (CRUSHED TABLET IN WATER), INTRA-ARTERIAL
     Route: 013

REACTIONS (8)
  - CYANOSIS [None]
  - EMOTIONAL DISTRESS [None]
  - HYPOAESTHESIA [None]
  - INTENTIONAL DRUG MISUSE [None]
  - PAIN IN EXTREMITY [None]
  - PERIPHERAL ISCHAEMIA [None]
  - PIGMENTATION DISORDER [None]
  - RHABDOMYOLYSIS [None]
